FAERS Safety Report 10519040 (Version 1)
Quarter: 2014Q4

REPORT INFORMATION
  Report Type: Spontaneous
  Country: US (occurrence: None)
  Receive Date: 20141014
  Receipt Date: 20141014
  Transmission Date: 20150528
  Serious: Yes (Life-Threatening)
  Sender: FDA-Public Use
  Company Number: None

PATIENT
  Age: 90 Year
  Sex: Male
  Weight: 74 kg

DRUGS (41)
  1. HEPARIN [Suspect]
     Active Substance: HEPARIN SODIUM
     Indication: BRONCHITIS
     Dosage: 5,000 UNITS TID SUBCUTANEOUS
     Route: 058
     Dates: start: 20140807, end: 20140811
  2. MUCINEX [Concomitant]
     Active Substance: GUAIFENESIN
  3. SOLUMDEROL [Concomitant]
  4. LASIX [Concomitant]
     Active Substance: FUROSEMIDE
  5. HUMULIN R [Concomitant]
     Active Substance: INSULIN HUMAN
  6. SODIUM CHLORIDE. [Concomitant]
     Active Substance: SODIUM CHLORIDE
  7. ATORVASTATIN [Concomitant]
     Active Substance: ATORVASTATIN
  8. NOVOLOG INSULIN NUTRITIONAL/CORRECTIONAL [Concomitant]
  9. LORAZEPAM. [Concomitant]
     Active Substance: LORAZEPAM
  10. HEPARIN [Suspect]
     Active Substance: HEPARIN SODIUM
     Indication: CARDIAC FAILURE CONGESTIVE
     Dosage: 5,000 UNITS TID SUBCUTANEOUS
     Route: 058
     Dates: start: 20140807, end: 20140811
  11. LEVOFLOXACIN. [Concomitant]
     Active Substance: LEVOFLOXACIN
  12. ALBUTEROL. [Concomitant]
     Active Substance: ALBUTEROL
  13. ATROVENT [Concomitant]
     Active Substance: IPRATROPIUM BROMIDE
  14. TAMSULOSIN [Concomitant]
     Active Substance: TAMSULOSIN
  15. FUROSEMIDE. [Concomitant]
     Active Substance: FUROSEMIDE
  16. PREDNISONE. [Concomitant]
     Active Substance: PREDNISONE
  17. PROTONIX [Concomitant]
     Active Substance: PANTOPRAZOLE SODIUM
  18. HEPARIN [Suspect]
     Active Substance: HEPARIN SODIUM
     Indication: HYPERTENSION
     Dosage: 5,000 UNITS TID SUBCUTANEOUS
     Route: 058
     Dates: start: 20140807, end: 20140811
  19. ADVAIR HFA [Concomitant]
     Active Substance: FLUTICASONE PROPIONATE\SALMETEROL XINAFOATE
  20. BUDESONIDE. [Concomitant]
     Active Substance: BUDESONIDE
  21. NOREPINEPHRINE DRIP TITRATE [Concomitant]
  22. GLIPIZIDE. [Concomitant]
     Active Substance: GLIPIZIDE
  23. LORAZEPAM. [Concomitant]
     Active Substance: LORAZEPAM
  24. LEVEMIR BASAL INSULIN [Concomitant]
  25. ASPIRIN. [Concomitant]
     Active Substance: ASPIRIN
  26. PHENYTOIN SODIUM. [Concomitant]
     Active Substance: PHENYTOIN SODIUM
  27. APAP/HYDROCODONE [Concomitant]
     Active Substance: ACETAMINOPHEN\HYDROCODONE
  28. HEPARIN [Suspect]
     Active Substance: HEPARIN SODIUM
     Indication: AORTIC STENOSIS
     Dosage: 5,000 UNITS TID SUBCUTANEOUS
     Route: 058
     Dates: start: 20140807, end: 20140811
  29. AMLODIPINE [Concomitant]
     Active Substance: AMLODIPINE BESYLATE
  30. PREDNISONE. [Concomitant]
     Active Substance: PREDNISONE
  31. FENTANYL CITRATE. [Concomitant]
     Active Substance: FENTANYL CITRATE
  32. ZOSYN [Concomitant]
     Active Substance: PIPERACILLIN SODIUM\TAZOBACTAM SODIUM
  33. FUROSEMIDE. [Concomitant]
     Active Substance: FUROSEMIDE
  34. APAP/CODEINE [Concomitant]
     Active Substance: ACETAMINOPHEN\CODEINE PHOSPHATE
  35. NORAL SALINE DRIP [Concomitant]
  36. HEPARIN [Suspect]
     Active Substance: HEPARIN SODIUM
     Indication: CHRONIC OBSTRUCTIVE PULMONARY DISEASE
     Dosage: 5,000 UNITS TID SUBCUTANEOUS
     Route: 058
     Dates: start: 20140807, end: 20140811
  37. SOLU-MEDROL [Concomitant]
     Active Substance: METHYLPREDNISOLONE SODIUM SUCCINATE
  38. HEPARIN [Concomitant]
     Active Substance: HEPARIN SODIUM
  39. OMEPRAZOLE. [Concomitant]
     Active Substance: OMEPRAZOLE
  40. VANCOMYCIN [Concomitant]
     Active Substance: VANCOMYCIN
  41. APAP [Concomitant]
     Active Substance: ACETAMINOPHEN

REACTIONS (2)
  - Platelet count decreased [None]
  - Muscle haemorrhage [None]

NARRATIVE: CASE EVENT DATE: 20140812
